FAERS Safety Report 12224189 (Version 1)
Quarter: 2016Q1

REPORT INFORMATION
  Report Type: Spontaneous
  Country: US (occurrence: US)
  Receive Date: 20160330
  Receipt Date: 20160330
  Transmission Date: 20160526
  Serious: Yes (Hospitalization, Other)
  Sender: FDA-Public Use
  Company Number: US-HQ SPECIALTY-US-2016INT000161

PATIENT
  Age: 2 Year
  Sex: Female

DRUGS (4)
  1. VINBLASTINE [Suspect]
     Active Substance: VINBLASTINE
     Indication: LANGERHANS^ CELL HISTIOCYTOSIS
     Dosage: UNK
  2. CLADRIBINE. [Suspect]
     Active Substance: CLADRIBINE
     Indication: LANGERHANS^ CELL HISTIOCYTOSIS
     Dosage: UNK
  3. PREDNISONE. [Suspect]
     Active Substance: PREDNISONE
     Indication: LANGERHANS^ CELL HISTIOCYTOSIS
     Dosage: UNK
  4. METHOTREXATE SODIUM. [Suspect]
     Active Substance: METHOTREXATE SODIUM
     Indication: LANGERHANS^ CELL HISTIOCYTOSIS
     Dosage: UNK

REACTIONS (16)
  - Treatment failure [Unknown]
  - Hypersplenism [Unknown]
  - Learning disorder [Unknown]
  - Hypokalaemia [Unknown]
  - Memory impairment [Unknown]
  - Cataract [Unknown]
  - Pyrexia [Unknown]
  - Mucosal inflammation [Unknown]
  - Chronic graft versus host disease [Unknown]
  - Growth hormone deficiency [Unknown]
  - Langerhans^ cell histiocytosis [Unknown]
  - Neutropenia [Unknown]
  - Pancytopenia [Unknown]
  - Pneumonia bacterial [Unknown]
  - Hepatic function abnormal [Unknown]
  - Hypothyroidism [Unknown]
